FAERS Safety Report 16296623 (Version 2)
Quarter: 2019Q2

REPORT INFORMATION
  Report Type: Report from Study
  Country: US (occurrence: US)
  Receive Date: 20190510
  Receipt Date: 20190628
  Transmission Date: 20190711
  Serious: No
  Sender: FDA-Public Use
  Company Number: PHEH2019US019746

PATIENT
  Sex: Female
  Weight: 134.72 kg

DRUGS (2)
  1. COSENTYX [Suspect]
     Active Substance: SECUKINUMAB
     Dosage: 300 MG, QMO
     Route: 058
     Dates: end: 20180621
  2. COSENTYX [Suspect]
     Active Substance: SECUKINUMAB
     Indication: PSORIATIC ARTHROPATHY
     Dosage: 300 MG, Q2W
     Route: 058
     Dates: start: 2017

REACTIONS (5)
  - Hypersensitivity [Unknown]
  - Swelling [Recovered/Resolved]
  - Inappropriate schedule of product administration [Unknown]
  - Pain [Recovered/Resolved]
  - Protein total increased [Recovered/Resolved]
